FAERS Safety Report 15038706 (Version 1)
Quarter: 2018Q2

REPORT INFORMATION
  Report Type: Spontaneous
  Country: US (occurrence: US)
  Receive Date: 20180620
  Receipt Date: 20180620
  Transmission Date: 20180711
  Serious: Yes (Hospitalization)
  Sender: FDA-Public Use
  Company Number: US-009507513-0911USA02661

PATIENT
  Sex: Female

DRUGS (8)
  1. VYTORIN [Suspect]
     Active Substance: EZETIMIBE\SIMVASTATIN
     Dosage: 10-40 MG, DAILY
     Route: 048
  2. MAGNESIUM (UNSPECIFIED) [Concomitant]
     Active Substance: MAGNESIUM
  3. ATENOLOL. [Concomitant]
     Active Substance: ATENOLOL
  4. FOSAMAX [Concomitant]
     Active Substance: ALENDRONATE SODIUM
     Dosage: UNK
     Dates: end: 200907
  5. VYTORIN [Suspect]
     Active Substance: EZETIMIBE\SIMVASTATIN
     Indication: BLOOD CHOLESTEROL INCREASED
     Dosage: 10-80 MG, DAILY
     Route: 048
     Dates: start: 2007
  6. COUMADIN [Concomitant]
     Active Substance: WARFARIN SODIUM
  7. TRAVATAN [Concomitant]
     Active Substance: TRAVOPROST
  8. ELIQUIS [Concomitant]
     Active Substance: APIXABAN

REACTIONS (4)
  - Food poisoning [Unknown]
  - Myalgia [Recovering/Resolving]
  - Muscle spasms [Unknown]
  - Wrong technique in product usage process [Unknown]

NARRATIVE: CASE EVENT DATE: 2007
